FAERS Safety Report 6873729-3 (Version None)
Quarter: 2010Q3

REPORT INFORMATION
  Report Type: 
  Country: None (occurrence: None)
  Receive Date: 20100723
  Receipt Date: 20090307
  Transmission Date: 20110219
  Serious: No
  Sender: FDA-Public Use
  Company Number: US-PFIZER INC-2009182561

PATIENT
  Sex: Female
  Weight: 56.699 kg

DRUGS (6)
  1. CHANTIX [Suspect]
     Indication: SMOKING CESSATION THERAPY
     Dosage: 0.5 MG, 2X/DAY
     Dates: start: 20090301
  2. CLARITIN [Concomitant]
     Dosage: UNK
  3. VITAMIN D [Concomitant]
     Dosage: UNK
  4. VITAMIN E [Concomitant]
     Dosage: UNK
  5. VITAMIN A [Concomitant]
     Dosage: UNK
  6. ECHINACEA [Concomitant]
     Dosage: UNK

REACTIONS (4)
  - DIZZINESS [None]
  - HYPOTENSION [None]
  - INSOMNIA [None]
  - NERVOUSNESS [None]
